FAERS Safety Report 25604300 (Version 1)
Quarter: 2025Q3

REPORT INFORMATION
  Report Type: Spontaneous
  Country: US (occurrence: US)
  Receive Date: 20250725
  Receipt Date: 20250725
  Transmission Date: 20251021
  Serious: No
  Sender: MERCK SHARP & DOHME LLC
  Company Number: US-009507513-2309885

PATIENT
  Age: 65 Year
  Sex: Male

DRUGS (7)
  1. POSACONAZOLE [Suspect]
     Active Substance: POSACONAZOLE
     Route: 048
  2. TACROLIMUS [Suspect]
     Active Substance: TACROLIMUS
  3. SIROLIMUS [Suspect]
     Active Substance: SIROLIMUS
  4. PREDNISONE [Concomitant]
     Active Substance: PREDNISONE
  5. VALACYCLOVIR [Concomitant]
     Active Substance: VALACYCLOVIR HYDROCHLORIDE
  6. MEROPENEM [Concomitant]
     Active Substance: MEROPENEM
  7. LINEZOLID [Concomitant]
     Active Substance: LINEZOLID

REACTIONS (1)
  - Labelled drug-drug interaction issue [Unknown]
